FAERS Safety Report 8761346 (Version 1)
Quarter: 2012Q4

REPORT INFORMATION
  Report Type: 
  Country: US (occurrence: US)
  Receive Date: 20120830
  Receipt Date: 20120830
  Transmission Date: 20130627
  Serious: Yes (Other)
  Sender: FDA-Public Use
  Company Number: US-PERRIGO-12US007376

PATIENT
  Age: 3 Year
  Sex: Female
  Weight: 13.15 kg

DRUGS (1)
  1. LICE SHMPO LIQ 866 [Suspect]
     Indication: LICE INFESTATION
     Dosage: 1 application, once, for 3 minutes
     Route: 061
     Dates: start: 20120821, end: 20120821

REACTIONS (4)
  - Burns first degree [Recovering/Resolving]
  - Eye irritation [Recovered/Resolved]
  - Accidental exposure to product [Recovered/Resolved]
  - Incorrect drug administration duration [Unknown]
